FAERS Safety Report 9165186 (Version 1)
Quarter: 2013Q1

REPORT INFORMATION
  Report Type: Report from Study
  Country: GB (occurrence: GB)
  Receive Date: 20130315
  Receipt Date: 20130315
  Transmission Date: 20140127
  Serious: Yes (Death, Other)
  Sender: FDA-Public Use
  Company Number: GB-ASTELLAS-2013EU002175

PATIENT
  Age: 29 Year
  Sex: Male
  Weight: 114.6 kg

DRUGS (10)
  1. TACROLIMUS SYSTEMIC [Suspect]
     Dosage: UNK MG, UNKNOWN/D
     Route: 065
  2. OMEPRAZOL                          /00661201/ [Concomitant]
     Dosage: 20 MG, UNKNOWN/D
     Route: 065
     Dates: start: 20120125
  3. AMLODIPINE [Concomitant]
     Dosage: 400 MG, UID/QD
     Route: 065
     Dates: start: 20120125
  4. BISOPROLOL [Concomitant]
     Dosage: 2.5 MG, NOCTE
     Route: 065
     Dates: start: 20120125
  5. CHLORPHENAMINE [Concomitant]
     Dosage: UNK
     Route: 065
     Dates: start: 20120411
  6. FLUOXETINE [Concomitant]
     Dosage: 20 MG, UNKNOWN/D
     Route: 065
     Dates: start: 20120125
  7. CLARITHROMYCIN [Concomitant]
     Dosage: 250 MG, BID
     Route: 065
  8. ACYCLOVIR                          /00587301/ [Concomitant]
     Dosage: 400 MG, UNKNOWN/D
     Route: 065
  9. SEPTRIN [Concomitant]
     Dosage: UNK
     Route: 065
  10. POSACONAZOLE [Concomitant]
     Dosage: 200 MG, UNKNOWN/D
     Route: 065

REACTIONS (3)
  - Off label use [Unknown]
  - Death [Fatal]
  - Renal impairment [Unknown]
